FAERS Safety Report 11571229 (Version 2)
Quarter: 2015Q4

REPORT INFORMATION
  Report Type: Spontaneous
  Country: US (occurrence: US)
  Receive Date: 20150929
  Receipt Date: 20151009
  Transmission Date: 20160304
  Serious: Yes (Hospitalization)
  Sender: FDA-Public Use
  Company Number: US-BAYER-2015-426919

PATIENT
  Age: 81 Year
  Sex: Male

DRUGS (3)
  1. TIKOSYN [Interacting]
     Active Substance: DOFETILIDE
     Indication: ATRIAL FIBRILLATION
     Dosage: 500 ?G, UNK
  2. CIPRO [Suspect]
     Active Substance: CIPROFLOXACIN HYDROCHLORIDE
     Dosage: UNK
     Dates: start: 201507
  3. TIKOSYN [Interacting]
     Active Substance: DOFETILIDE
     Indication: ATRIAL FIBRILLATION
     Dosage: 250 ?G, UNK

REACTIONS (2)
  - Drug interaction [None]
  - Salmonellosis [None]

NARRATIVE: CASE EVENT DATE: 20150727
